FAERS Safety Report 24840277 (Version 1)
Quarter: 2025Q1

REPORT INFORMATION
  Report Type: Spontaneous
  Country: GB (occurrence: GB)
  Receive Date: 20250114
  Receipt Date: 20250114
  Transmission Date: 20250409
  Serious: Yes (Other)
  Sender: MYLAN
  Company Number: None

PATIENT
  Age: 58 Year
  Sex: Male

DRUGS (21)
  1. APIXABAN [Suspect]
     Active Substance: APIXABAN
     Indication: Product used for unknown indication
     Dosage: 5 MILLIGRAM, BID
     Route: 065
  2. SODIUM CHLORIDE [Concomitant]
     Active Substance: SODIUM CHLORIDE
     Dosage: UNK UNK, QID (6 PERCENT INHALATION QDS PRN)
     Route: 055
  3. SERTRALINE [Concomitant]
     Active Substance: SERTRALINE HYDROCHLORIDE
     Dosage: 150 MILLIGRAM, QD (150 MG OD)
     Route: 065
  4. IPRATROPIUM BROMIDE [Concomitant]
     Active Substance: IPRATROPIUM BROMIDE
     Dosage: UNK UNK, QID (500 MICROGRAMS / 2 ML NEBULISED QDS PRN)
     Route: 065
  5. LORAZEPAM [Concomitant]
     Active Substance: LORAZEPAM
     Dosage: 0.5 MILLIGRAM, QID (0.5 MG QDS PRN (BREATHLESSNESS))
     Route: 065
  6. FLUCLOXACILLIN [Concomitant]
     Active Substance: FLUCLOXACILLIN
     Dosage: 1 DOSAGE FORM, QID (500 MG CAPSULES ONE TO BE TAKEN FOUR TIMES A DAY 28 CAPSULE)
     Route: 065
  7. NICOTINE [Concomitant]
     Active Substance: NICOTINE
     Route: 062
  8. BISOPROLOL [Concomitant]
     Active Substance: BISOPROLOL
     Dosage: 7.5 MILLIGRAM, BID (7.5 MG BD)
     Route: 065
  9. FOLIC ACID [Concomitant]
     Active Substance: FOLIC ACID
     Dosage: 5 MILLIGRAM, AM (5 MG OM)
     Route: 065
  10. ACETYLCYSTEINE [Concomitant]
     Active Substance: ACETYLCYSTEINE
     Dosage: 600 MILLIGRAM, QD (600 MG EFFERVESCENT OD)
     Route: 065
  11. BECLOMETHASONE DIPROPIONATE\FORMOTEROL FUMARATE\GLYCOPYRROLATE [Concomitant]
     Active Substance: BECLOMETHASONE DIPROPIONATE\FORMOTEROL FUMARATE\GLYCOPYRROLATE
     Dosage: 2 DOSAGE FORM, BID (87/5/9 MICROGRAMS / DOSE INHALER 2P BD)
     Route: 055
  12. LACTULOSE [Concomitant]
     Active Substance: LACTULOSE
     Dosage: 15 MILLILITER, BID (15ML BD PRN)
     Route: 065
  13. METHADONE [Concomitant]
     Active Substance: METHADONE HYDROCHLORIDE
     Dosage: 55 MILLILITER, QD (1 MG / ML ORAL SOLUTION 55ML OD)
     Route: 065
  14. ACETAMINOPHEN [Concomitant]
     Active Substance: ACETAMINOPHEN
     Dosage: 1000 MILLIGRAM, QID (1000 MG QDS PRN)
     Route: 065
  15. MORPHINE [Concomitant]
     Active Substance: MORPHINE
     Dosage: UNK UNK, QID (10 MG / 5 ML ORAL SOLUTION 2.5 MG-5 MG (1.25 ML-2.5 ML) QDS PRN)
     Route: 065
  16. BUMETANIDE [Concomitant]
     Active Substance: BUMETANIDE
     Dosage: 3 DOSAGE FORM, QD (2 MG OM AND 1 MG AT LUNCHTIME)
     Route: 065
  17. AZITHROMYCIN [Concomitant]
     Active Substance: AZITHROMYCIN
     Dosage: 250 MILLIGRAM, 3XW (250 MG ON MON/ WED/ FRI)
     Route: 065
  18. SENNA [Concomitant]
     Active Substance: SENNOSIDES
     Dosage: 15 MILLIGRAM, PM (15 MG ON PRN)
     Route: 065
  19. AMLODIPINE [Concomitant]
     Active Substance: AMLODIPINE BESYLATE
     Dosage: 5 MILLIGRAM, QD (5 MG OD - HELD LAST ADMISSION)
     Route: 065
  20. ALBUTEROL [Concomitant]
     Active Substance: ALBUTEROL
     Route: 055
  21. MIRTAZAPINE [Concomitant]
     Active Substance: MIRTAZAPINE
     Dosage: 45 MILLIGRAM, PM (45 MG ON)
     Route: 065

REACTIONS (1)
  - Pulmonary embolism [Not Recovered/Not Resolved]

NARRATIVE: CASE EVENT DATE: 20241009
